FAERS Safety Report 9965421 (Version 1)
Quarter: 2014Q1

REPORT INFORMATION
  Report Type: Report from Study
  Country: US (occurrence: US)
  Receive Date: 20140305
  Receipt Date: 20140305
  Transmission Date: 20141002
  Serious: No
  Sender: FDA-Public Use
  Company Number: US-ABBVIE-13P-163-1126538-00

PATIENT
  Age: 53 Year
  Sex: Male

DRUGS (4)
  1. HUMIRA [Suspect]
     Indication: PSORIASIS
     Dates: start: 20130426
  2. DEPAKOTE [Concomitant]
     Indication: BIPOLAR DISORDER
  3. CYMBALTA [Concomitant]
     Indication: BIPOLAR DISORDER
     Dosage: EVERY AM
  4. LAMICTAL [Concomitant]
     Indication: BIPOLAR DISORDER
     Dosage: EVERY AM

REACTIONS (1)
  - Headache [Not Recovered/Not Resolved]
